FAERS Safety Report 20016909 (Version 1)
Quarter: 2021Q4

REPORT INFORMATION
  Report Type: Spontaneous
  Country: US (occurrence: None)
  Receive Date: 20211105
  Receipt Date: 20211105
  Transmission Date: 20220303
  Serious: Yes (Death)
  Sender: FDA-Public Use
  Company Number: None

PATIENT
  Age: 49 Year
  Sex: Female

DRUGS (1)
  1. KYMRIAH [Suspect]
     Active Substance: TISAGENLECLEUCEL
     Indication: Diffuse large B-cell lymphoma
     Dates: start: 20210519, end: 20210519

REACTIONS (9)
  - Cytokine release syndrome [None]
  - Neurotoxicity [None]
  - Haemophagocytic lymphohistiocytosis [None]
  - Skin disorder [None]
  - Disease progression [None]
  - Gingival bleeding [None]
  - Anaemia [None]
  - Thrombocytopenia [None]
  - General physical health deterioration [None]

NARRATIVE: CASE EVENT DATE: 20210527
